FAERS Safety Report 18410252 (Version 3)
Quarter: 2021Q1

REPORT INFORMATION
  Report Type: Report from Study
  Country: US (occurrence: US)
  Receive Date: 20201021
  Receipt Date: 20210112
  Transmission Date: 20210419
  Serious: Yes (Hospitalization)
  Sender: FDA-Public Use
  Company Number: US-KYOWAKIRIN-2020BKK016779

PATIENT

DRUGS (1)
  1. CRYSVITA [Suspect]
     Active Substance: BUROSUMAB-TWZA
     Indication: HEREDITARY HYPOPHOSPHATAEMIC RICKETS
     Dosage: UNK
     Route: 058
     Dates: end: 202011

REACTIONS (6)
  - Trigger finger [Unknown]
  - Constipation [Unknown]
  - Cardiovascular disorder [Unknown]
  - Colitis ischaemic [Unknown]
  - Infection [Unknown]
  - Spinal stenosis [Unknown]

NARRATIVE: CASE EVENT DATE: 2020
